FAERS Safety Report 12699701 (Version 1)
Quarter: 2016Q3

REPORT INFORMATION
  Report Type: Spontaneous
  Country: US (occurrence: US)
  Receive Date: 20160830
  Receipt Date: 20160830
  Transmission Date: 20161109
  Serious: Yes (Other)
  Sender: FDA-Public Use
  Company Number: US-LPDUSPRD-20160747

PATIENT
  Sex: Female

DRUGS (1)
  1. NEOSTIGMINE METHYLSULFATE INJECTION, USP (0033-10) 1.0 MG/ML [Suspect]
     Active Substance: NEOSTIGMINE METHYLSULFATE
     Dosage: 1MG
     Route: 042

REACTIONS (9)
  - Off label use [Unknown]
  - Loss of consciousness [Unknown]
  - Nausea [Unknown]
  - Bradycardia [Unknown]
  - Tonic convulsion [Unknown]
  - Chest pain [Unknown]
  - Muscle rigidity [Unknown]
  - Hypotension [Unknown]
  - Blood pressure immeasurable [None]
